FAERS Safety Report 7162068-1 (Version None)
Quarter: 2010Q4

REPORT INFORMATION
  Report Type: 
  Country: None (occurrence: None)
  Receive Date: 20101215
  Receipt Date: 20090720
  Transmission Date: 20110411
  Serious: Yes (Hospitalization, Other)
  Sender: FDA-Public Use
  Company Number: US-PFIZER INC-2008092636

PATIENT
  Sex: Male
  Weight: 136 kg

DRUGS (7)
  1. LYRICA [Suspect]
     Indication: ARTHRALGIA
     Dosage: UNK
     Dates: start: 20060101
  2. OXYCODONE [Concomitant]
     Dosage: UNK
  3. ATIVAN [Concomitant]
     Dosage: UNK
  4. GLYBURIDE [Concomitant]
     Dosage: UNK
  5. VYTORIN [Concomitant]
     Dosage: UNK
  6. NOVOLIN 70/30 [Concomitant]
     Dosage: UNK
  7. NEURONTIN [Concomitant]
     Dosage: UNK

REACTIONS (3)
  - ARTHRITIS INFECTIVE [None]
  - CARDIAC FAILURE CONGESTIVE [None]
  - KNEE ARTHROPLASTY [None]
